FAERS Safety Report 10595245 (Version 2)
Quarter: 2014Q4

REPORT INFORMATION
  Report Type: Spontaneous
  Country: FR (occurrence: None)
  Receive Date: 20141118
  Receipt Date: 20141128
  Transmission Date: 20150529
  Serious: Yes (Hospitalization)
  Sender: FDA-Public Use
  Company Number: AXC-2014-000719

PATIENT
  Age: 57 Year
  Sex: Female

DRUGS (4)
  1. URSODEOXYCHOLIC ACID (URSODEOXYCHOLIC ACID) UNKNOWN) [Suspect]
     Active Substance: URSODIOL
     Indication: PROPHYLAXIS
     Dosage: 13-+15 MG/KG, PER DAY IN 2 SEPARATE DOSES
  2. URSODEOXYCHOLIC ACID (URSODEOXYCHOLIC ACID) UNKNOWN) [Suspect]
     Active Substance: URSODIOL
     Indication: DEVICE OCCLUSION
     Dosage: 13-+15 MG/KG, PER DAY IN 2 SEPARATE DOSES
  3. NORFLOXACIN [Suspect]
     Active Substance: NORFLOXACIN
     Indication: PROPHYLAXIS
  4. NORFLOXACIN [Suspect]
     Active Substance: NORFLOXACIN
     Indication: DEVICE OCCLUSION

REACTIONS (4)
  - Cholangitis acute [None]
  - Cholelithiasis [None]
  - Device occlusion [None]
  - Cholangitis [None]
